FAERS Safety Report 4278626-8 (Version None)
Quarter: 2004Q1

REPORT INFORMATION
  Report Type: 
  Country: None (occurrence: None)
  Receive Date: 20040122
  Receipt Date: 20040122
  Transmission Date: 20041129
  Serious: Yes (Hospitalization)
  Sender: FDA-Public Use
  Company Number: None

PATIENT
  Sex: Female
  Weight: 100 kg

DRUGS (11)
  1. LEVAQUIN [Suspect]
     Indication: RESPIRATORY TRACT INFECTION
     Dosage: 500 MG PO QD
     Route: 048
     Dates: start: 20031230, end: 20031231
  2. KLONOPIN [Concomitant]
  3. CARAFATE [Concomitant]
  4. PREDNISONE [Concomitant]
  5. LIBRIUM [Concomitant]
  6. AMBIEN [Concomitant]
  7. LEVOXYL [Concomitant]
  8. PREMARIN [Concomitant]
  9. LOPRESSOR [Concomitant]
  10. WELLBUTRIN [Concomitant]
  11. LASIX [Concomitant]

REACTIONS (2)
  - DERMATITIS BULLOUS [None]
  - DERMATITIS EXFOLIATIVE [None]
